FAERS Safety Report 4957626-6 (Version None)
Quarter: 2006Q1

REPORT INFORMATION
  Report Type: 
  Country: None (occurrence: None)
  Receive Date: 20060330
  Receipt Date: 20060320
  Transmission Date: 20060701
  Serious: Yes (Death)
  Sender: FDA-Public Use
  Company Number: US-SANOFI-SYNTHELABO-A03200601606

PATIENT
  Sex: Male
  Weight: 63.49 kg

DRUGS (4)
  1. PLAVIX [Suspect]
     Indication: DRUG USE FOR UNKNOWN INDICATION
     Route: 048
  2. CORTISONE ACETATE TAB [Concomitant]
     Dosage: UNK
     Route: 065
  3. FLONASE [Concomitant]
     Dosage: UNK
     Route: 065
  4. LIPITOR [Concomitant]
     Dosage: UNK
     Route: 048

REACTIONS (2)
  - PNEUMOTHORAX [None]
  - RESPIRATORY FAILURE [None]
